FAERS Safety Report 10855602 (Version 1)
Quarter: 2015Q1

REPORT INFORMATION
  Report Type: Spontaneous
  Country: US (occurrence: None)
  Receive Date: 20150218
  Receipt Date: 20150218
  Transmission Date: 20150721
  Serious: Yes (Other)
  Sender: FDA-Public Use
  Company Number: None

PATIENT
  Age: 48 Year
  Sex: Female
  Weight: 115.67 kg

DRUGS (4)
  1. MOTRIN [Concomitant]
     Active Substance: IBUPROFEN
  2. ENOXAPARIN [Suspect]
     Active Substance: ENOXAPARIN
     Indication: PREOPERATIVE CARE
     Dosage: 1 INJECTION GIVEN INTO/UNDER THE SKIN
     Dates: start: 20150206, end: 20150210
  3. ENOXAPARIN [Suspect]
     Active Substance: ENOXAPARIN
     Indication: PRODUCT USED FOR UNKNOWN INDICATION
     Dosage: 1 INJECTION GIVEN INTO/UNDER THE SKIN
     Dates: start: 20150206, end: 20150210
  4. WARFARIN [Concomitant]
     Active Substance: WARFARIN

REACTIONS (6)
  - Injection site rash [None]
  - No therapeutic response [None]
  - Injection site pain [None]
  - Injection site mass [None]
  - Injection site bruising [None]
  - Rash papular [None]

NARRATIVE: CASE EVENT DATE: 20150212
